FAERS Safety Report 4373011-2 (Version None)
Quarter: 2004Q2

REPORT INFORMATION
  Report Type: 
  Country: None (occurrence: None)
  Receive Date: 20040608
  Receipt Date: 20040210
  Transmission Date: 20050107
  Serious: Yes (Disabling)
  Sender: FDA-Public Use
  Company Number: US-ROCHE-358724

PATIENT
  Age: 52 Year
  Sex: Female

DRUGS (1)
  1. ROCEPHIN [Suspect]
     Indication: BRONCHITIS
     Route: 030
     Dates: start: 20031002, end: 20031002

REACTIONS (3)
  - ANAPHYLACTIC REACTION [None]
  - DEAFNESS NEUROSENSORY [None]
  - OTOTOXICITY [None]
